FAERS Safety Report 17566820 (Version 9)
Quarter: 2020Q4

REPORT INFORMATION
  Report Type: Spontaneous
  Country: CA (occurrence: CA)
  Receive Date: 20200320
  Receipt Date: 20201113
  Transmission Date: 20210113
  Serious: Yes (Life-Threatening, Other)
  Sender: FDA-Public Use
  Company Number: CA-JNJFOC-20200320585

PATIENT
  Age: 45 Year
  Sex: Female

DRUGS (94)
  1. PROGRAF [Suspect]
     Active Substance: TACROLIMUS
     Route: 048
  2. ANTITHYMOCYTE IMMUNOGLOBULIN [Suspect]
     Active Substance: THYMOCYTE IMMUNE GLOBULIN NOS
  3. ANTITHYMOCYTE IMMUNOGLOBULIN [Suspect]
     Active Substance: THYMOCYTE IMMUNE GLOBULIN NOS
     Route: 065
  4. MYCOPHENOLATE MOFETIL. [Suspect]
     Active Substance: MYCOPHENOLATE MOFETIL
     Indication: PRODUCT USED FOR UNKNOWN INDICATION
     Route: 048
  5. NEORAL [Suspect]
     Active Substance: CYCLOSPORINE
     Indication: TRANSPLANT
     Route: 065
  6. ENBREL [Suspect]
     Active Substance: ETANERCEPT
     Route: 058
  7. ENBREL [Suspect]
     Active Substance: ETANERCEPT
     Route: 065
  8. TACROLIMUS. [Suspect]
     Active Substance: TACROLIMUS
     Route: 048
  9. MYCOPHENOLATE MOFETIL. [Suspect]
     Active Substance: MYCOPHENOLATE MOFETIL
     Route: 048
  10. TACROLIMUS. [Suspect]
     Active Substance: TACROLIMUS
     Route: 048
  11. CELLCEPT [Suspect]
     Active Substance: MYCOPHENOLATE MOFETIL\MYCOPHENOLATE MOFETIL HYDROCHLORIDE
     Route: 048
  12. DACLIZUMAB [Suspect]
     Active Substance: DACLIZUMAB
     Route: 042
  13. MYCOPHENOLATE MOFETIL. [Suspect]
     Active Substance: MYCOPHENOLATE MOFETIL
     Indication: TRANSPLANT
     Route: 048
  14. PROGRAF [Suspect]
     Active Substance: TACROLIMUS
     Route: 048
  15. PROGRAF [Suspect]
     Active Substance: TACROLIMUS
     Route: 048
  16. PROGRAF [Suspect]
     Active Substance: TACROLIMUS
     Route: 048
  17. PROGRAF [Suspect]
     Active Substance: TACROLIMUS
     Route: 048
  18. PROGRAF [Suspect]
     Active Substance: TACROLIMUS
     Route: 048
  19. ANTITHYMOCYTE IMMUNOGLOBULIN [Suspect]
     Active Substance: THYMOCYTE IMMUNE GLOBULIN NOS
     Indication: TRANSPLANT
     Route: 065
  20. ANTITHYMOCYTE IMMUNOGLOBULIN [Suspect]
     Active Substance: THYMOCYTE IMMUNE GLOBULIN NOS
     Route: 065
  21. ANTITHYMOCYTE IMMUNOGLOBULIN [Suspect]
     Active Substance: THYMOCYTE IMMUNE GLOBULIN NOS
     Route: 065
  22. MYCOPHENOLATE MOFETIL. [Suspect]
     Active Substance: MYCOPHENOLATE MOFETIL
     Route: 048
  23. ENBREL [Suspect]
     Active Substance: ETANERCEPT
     Indication: PRODUCT USED FOR UNKNOWN INDICATION
     Route: 058
  24. ENBREL [Suspect]
     Active Substance: ETANERCEPT
     Route: 048
  25. SULFASALAZINE. [Suspect]
     Active Substance: SULFASALAZINE
     Indication: RHEUMATOID ARTHRITIS
     Route: 065
  26. TACROLIMUS. [Suspect]
     Active Substance: TACROLIMUS
     Route: 048
  27. ANTITHYMOCYTE IMMUNOGLOBULIN (RABBIT) [Suspect]
     Active Substance: LAPINE T-LYMPHOCYTE IMMUNE GLOBULIN
     Route: 005
  28. TACROLIMUS. [Suspect]
     Active Substance: TACROLIMUS
     Route: 048
  29. REMICADE [Suspect]
     Active Substance: INFLIXIMAB
     Indication: PRODUCT USED FOR UNKNOWN INDICATION
     Route: 042
  30. PROGRAF [Suspect]
     Active Substance: TACROLIMUS
     Route: 048
  31. ANTITHYMOCYTE IMMUNOGLOBULIN [Suspect]
     Active Substance: THYMOCYTE IMMUNE GLOBULIN NOS
     Route: 065
  32. ANTITHYMOCYTE IMMUNOGLOBULIN [Suspect]
     Active Substance: THYMOCYTE IMMUNE GLOBULIN NOS
     Route: 065
  33. ENBREL [Suspect]
     Active Substance: ETANERCEPT
     Route: 058
  34. ENBREL [Suspect]
     Active Substance: ETANERCEPT
     Route: 058
  35. ENBREL [Suspect]
     Active Substance: ETANERCEPT
     Route: 048
  36. TACROLIMUS. [Suspect]
     Active Substance: TACROLIMUS
     Route: 048
  37. TACROLIMUS. [Suspect]
     Active Substance: TACROLIMUS
     Route: 048
  38. DACLIZUMAB [Suspect]
     Active Substance: DACLIZUMAB
     Route: 042
  39. MYCOPHENOLATE MOFETIL. [Suspect]
     Active Substance: MYCOPHENOLATE MOFETIL
     Route: 048
  40. PROGRAF [Suspect]
     Active Substance: TACROLIMUS
     Route: 048
  41. PROGRAF [Suspect]
     Active Substance: TACROLIMUS
     Route: 048
  42. PROGRAF [Suspect]
     Active Substance: TACROLIMUS
     Route: 048
  43. PROGRAF [Suspect]
     Active Substance: TACROLIMUS
     Route: 048
  44. PROGRAF [Suspect]
     Active Substance: TACROLIMUS
     Route: 048
  45. PROGRAF [Suspect]
     Active Substance: TACROLIMUS
     Route: 048
  46. DACLIZUMAB [Suspect]
     Active Substance: DACLIZUMAB
     Indication: TRANSPLANT
     Route: 042
  47. MYCOPHENOLATE MOFETIL. [Suspect]
     Active Substance: MYCOPHENOLATE MOFETIL
     Route: 048
  48. MYCOPHENOLATE MOFETIL. [Suspect]
     Active Substance: MYCOPHENOLATE MOFETIL
     Route: 048
  49. RAPAMUNE [Suspect]
     Active Substance: SIROLIMUS
     Indication: TRANSPLANT
     Route: 042
  50. ENBREL [Suspect]
     Active Substance: ETANERCEPT
     Route: 058
  51. MYCOPHENOLATE MOFETIL. [Suspect]
     Active Substance: MYCOPHENOLATE MOFETIL
     Route: 048
  52. MYCOPHENOLATE MOFETIL. [Suspect]
     Active Substance: MYCOPHENOLATE MOFETIL
     Route: 065
  53. TACROLIMUS. [Suspect]
     Active Substance: TACROLIMUS
     Route: 065
  54. TACROLIMUS. [Suspect]
     Active Substance: TACROLIMUS
     Route: 048
  55. CELLCEPT [Suspect]
     Active Substance: MYCOPHENOLATE MOFETIL\MYCOPHENOLATE MOFETIL HYDROCHLORIDE
     Route: 048
  56. MYCOPHENOLATE MOFETIL. [Suspect]
     Active Substance: MYCOPHENOLATE MOFETIL
     Route: 048
  57. ANTITHYMOCYTE IMMUNOGLOBULIN [Suspect]
     Active Substance: THYMOCYTE IMMUNE GLOBULIN NOS
  58. ANTITHYMOCYTE IMMUNOGLOBULIN [Suspect]
     Active Substance: THYMOCYTE IMMUNE GLOBULIN NOS
     Route: 065
  59. ANTITHYMOCYTE IMMUNOGLOBULIN [Suspect]
     Active Substance: THYMOCYTE IMMUNE GLOBULIN NOS
     Route: 065
  60. ANTITHYMOCYTE IMMUNOGLOBULIN (RABBIT) [Suspect]
     Active Substance: LAPINE T-LYMPHOCYTE IMMUNE GLOBULIN
     Indication: TRANSPLANT
     Route: 005
  61. MYCOPHENOLATE MOFETIL. [Suspect]
     Active Substance: MYCOPHENOLATE MOFETIL
     Indication: PRODUCT USED FOR UNKNOWN INDICATION
     Route: 048
  62. TACROLIMUS. [Suspect]
     Active Substance: TACROLIMUS
     Indication: PRODUCT USED FOR UNKNOWN INDICATION
     Route: 048
  63. TACROLIMUS. [Suspect]
     Active Substance: TACROLIMUS
     Route: 048
  64. PROGRAF [Suspect]
     Active Substance: TACROLIMUS
     Indication: TRANSPLANT
     Route: 048
  65. PROGRAF [Suspect]
     Active Substance: TACROLIMUS
     Indication: PRODUCT USED FOR UNKNOWN INDICATION
     Route: 048
  66. ANTITHYMOCYTE IMMUNOGLOBULIN [Suspect]
     Active Substance: THYMOCYTE IMMUNE GLOBULIN NOS
  67. MYCOPHENOLATE MOFETIL. [Suspect]
     Active Substance: MYCOPHENOLATE MOFETIL
     Route: 048
  68. ENBREL [Suspect]
     Active Substance: ETANERCEPT
     Route: 058
  69. ENBREL [Suspect]
     Active Substance: ETANERCEPT
     Route: 058
  70. ENBREL [Suspect]
     Active Substance: ETANERCEPT
     Route: 058
  71. TACROLIMUS. [Suspect]
     Active Substance: TACROLIMUS
     Route: 048
  72. INFLIXIMAB [Suspect]
     Active Substance: INFLIXIMAB
     Indication: PRODUCT USED FOR UNKNOWN INDICATION
     Route: 042
  73. PROGRAF [Suspect]
     Active Substance: TACROLIMUS
     Route: 048
  74. PROGRAF [Suspect]
     Active Substance: TACROLIMUS
     Route: 048
  75. DACLIZUMAB [Suspect]
     Active Substance: DACLIZUMAB
     Route: 042
  76. ENBREL [Suspect]
     Active Substance: ETANERCEPT
     Route: 048
  77. ENBREL [Suspect]
     Active Substance: ETANERCEPT
     Route: 058
  78. ENBREL [Suspect]
     Active Substance: ETANERCEPT
     Route: 065
  79. ANTITHYMOCYTE IMMUNOGLOBULIN (RABBIT) [Suspect]
     Active Substance: LAPINE T-LYMPHOCYTE IMMUNE GLOBULIN
     Route: 005
  80. MYCOPHENOLATE MOFETIL. [Suspect]
     Active Substance: MYCOPHENOLATE MOFETIL
     Route: 065
  81. TACROLIMUS. [Suspect]
     Active Substance: TACROLIMUS
     Route: 048
  82. TACROLIMUS. [Suspect]
     Active Substance: TACROLIMUS
     Route: 048
  83. DACLIZUMAB [Suspect]
     Active Substance: DACLIZUMAB
     Indication: TRANSPLANT
     Route: 042
  84. PROGRAF [Suspect]
     Active Substance: TACROLIMUS
     Route: 048
  85. PROGRAF [Suspect]
     Active Substance: TACROLIMUS
     Route: 048
  86. ANTITHYMOCYTE IMMUNOGLOBULIN [Suspect]
     Active Substance: THYMOCYTE IMMUNE GLOBULIN NOS
  87. MYCOPHENOLATE MOFETIL. [Suspect]
     Active Substance: MYCOPHENOLATE MOFETIL
     Indication: TRANSPLANT
     Route: 048
  88. RAPAMUNE [Suspect]
     Active Substance: SIROLIMUS
     Route: 065
  89. ENBREL [Suspect]
     Active Substance: ETANERCEPT
     Route: 058
  90. TACROLIMUS. [Suspect]
     Active Substance: TACROLIMUS
     Indication: TRANSPLANT
     Route: 048
  91. TACROLIMUS. [Suspect]
     Active Substance: TACROLIMUS
     Route: 048
  92. ANTITHYMOCYTE IMMUNOGLOBULIN (RABBIT) [Suspect]
     Active Substance: LAPINE T-LYMPHOCYTE IMMUNE GLOBULIN
     Route: 005
  93. CELLCEPT [Suspect]
     Active Substance: MYCOPHENOLATE MOFETIL\MYCOPHENOLATE MOFETIL HYDROCHLORIDE
     Indication: TRANSPLANT
     Route: 048
  94. RAPAMUNE [Suspect]
     Active Substance: SIROLIMUS
     Indication: PRODUCT USED FOR UNKNOWN INDICATION

REACTIONS (16)
  - Acne [Not Recovered/Not Resolved]
  - Rheumatoid arthritis [Not Recovered/Not Resolved]
  - Ovarian cyst [Not Recovered/Not Resolved]
  - Pneumonia [Not Recovered/Not Resolved]
  - Pain [Not Recovered/Not Resolved]
  - Transplant rejection [Not Recovered/Not Resolved]
  - Alopecia [Not Recovered/Not Resolved]
  - Drug ineffective [Not Recovered/Not Resolved]
  - Product use issue [Not Recovered/Not Resolved]
  - Overdose [Not Recovered/Not Resolved]
  - Incorrect route of product administration [Not Recovered/Not Resolved]
  - Condition aggravated [Not Recovered/Not Resolved]
  - Sleep disorder due to general medical condition, insomnia type [Not Recovered/Not Resolved]
  - Liver function test abnormal [Not Recovered/Not Resolved]
  - Transplant dysfunction [Not Recovered/Not Resolved]
  - Loss of personal independence in daily activities [Not Recovered/Not Resolved]
